FAERS Safety Report 14726116 (Version 5)
Quarter: 2019Q4

REPORT INFORMATION
  Report Type: Report from Study
  Country: JP (occurrence: JP)
  Receive Date: 20180406
  Receipt Date: 20191216
  Transmission Date: 20200122
  Serious: Yes (Life-Threatening, Hospitalization, Other)
  Sender: FDA-Public Use
  Company Number: JP-BRISTOL-MYERS SQUIBB COMPANY-BMS-2018-031120

PATIENT
  Age: 45 Year
  Sex: Male
  Weight: 68 kg

DRUGS (4)
  1. TRISENOX [Suspect]
     Active Substance: ARSENIC TRIOXIDE
     Indication: PRODUCT USED FOR UNKNOWN INDICATION
     Dosage: 10 MILLIGRAM
     Route: 065
     Dates: start: 20180416, end: 20180515
  2. NIVOLUMAB [Suspect]
     Active Substance: NIVOLUMAB
     Indication: HODGKIN^S DISEASE
     Dosage: 3 MG/KG, UNK
     Route: 041
     Dates: start: 20170609, end: 20171124
  3. NIVOLUMAB [Suspect]
     Active Substance: NIVOLUMAB
     Indication: PRODUCT USED FOR UNKNOWN INDICATION
     Dosage: 3 MG/KG, UNK
     Route: 041
     Dates: start: 20170609, end: 20180601
  4. VESANOID [Suspect]
     Active Substance: TRETINOIN
     Indication: PRODUCT USED FOR UNKNOWN INDICATION
     Dosage: 80 MILLIGRAM
     Route: 065
     Dates: start: 20171223, end: 20180411

REACTIONS (6)
  - Neutrophil count decreased [Recovered/Resolved]
  - Electrocardiogram QT prolonged [Recovering/Resolving]
  - Platelet count decreased [Recovered/Resolved]
  - Cardiac ventricular thrombosis [Recovering/Resolving]
  - Disseminated intravascular coagulation [Recovered/Resolved]
  - Acute promyelocytic leukaemia [Recovered/Resolved]

NARRATIVE: CASE EVENT DATE: 20170818
